FAERS Safety Report 13981567 (Version 1)
Quarter: 2017Q3

REPORT INFORMATION
  Report Type: Spontaneous
  Country: US (occurrence: US)
  Receive Date: 20170917
  Receipt Date: 20170917
  Transmission Date: 20171128
  Serious: No
  Sender: FDA-Public Use
  Company Number: None

PATIENT
  Age: 49 Year
  Sex: Male
  Weight: 76.5 kg

DRUGS (1)
  1. LEVOFLOXACIN. [Suspect]
     Active Substance: LEVOFLOXACIN
     Indication: EPIDIDYMITIS
     Dosage: ?          QUANTITY:10 TABLET(S);?
     Route: 048
     Dates: start: 20170913, end: 20170915

REACTIONS (2)
  - Gait disturbance [None]
  - Tendon pain [None]

NARRATIVE: CASE EVENT DATE: 20170915
